FAERS Safety Report 11149281 (Version 1)
Quarter: 2015Q2

REPORT INFORMATION
  Report Type: Spontaneous
  Country: ES (occurrence: None)
  Receive Date: 20150527
  Receipt Date: 20150527
  Transmission Date: 20150821
  Serious: Yes (Hospitalization)
  Sender: FDA-Public Use
  Company Number: FK201502393

PATIENT
  Age: 64 Year
  Sex: Male

DRUGS (3)
  1. OXALIPLATIN. [Concomitant]
     Active Substance: OXALIPLATIN
  2. FLUOROURACIL (MANUFACTURER UNKNOWN) (FLUOROURACIL) (FLUOROURACIL) [Suspect]
     Active Substance: FLUOROURACIL
     Indication: ADENOCARCINOMA OF COLON
     Dosage: DURING SECOND CYCLE
  3. FOLINIC ACID [Concomitant]
     Active Substance: LEUCOVORIN

REACTIONS (6)
  - Dehydration [None]
  - Renal impairment [None]
  - Blood lactic acid increased [None]
  - Liver disorder [None]
  - Hyperammonaemic encephalopathy [None]
  - Vomiting [None]
